FAERS Safety Report 5299227-9 (Version None)
Quarter: 2007Q2

REPORT INFORMATION
  Report Type: 
  Country: None (occurrence: None)
  Receive Date: 20070411
  Receipt Date: 20070411
  Transmission Date: 20071010
  Serious: Yes (Other)
  Sender: FDA-Public Use
  Company Number: None

PATIENT
  Sex: Female
  Weight: 54.4316 kg

DRUGS (2)
  1. AMBIEN [Suspect]
     Indication: COMPLEX REGIONAL PAIN SYNDROME
     Dosage: 5 MG EVERY NIGHT
     Dates: start: 20030601
  2. AMBIEN [Suspect]
     Dosage: 10 MG TOOK TWICE + WILL NEVER TAKE THAT DOSE AGAIN!

REACTIONS (3)
  - AMNESIA [None]
  - BINGE EATING [None]
  - HALLUCINATION [None]
